FAERS Safety Report 20693993 (Version 1)
Quarter: 2022Q2

REPORT INFORMATION
  Report Type: Spontaneous
  Country: CA (occurrence: CA)
  Receive Date: 20220411
  Receipt Date: 20220411
  Transmission Date: 20220721
  Serious: Yes (Disabling)
  Sender: FDA-Public Use
  Company Number: CA-009507513-1501CAN011562

PATIENT
  Age: 52 Year
  Sex: Female
  Weight: 55 kg

DRUGS (5)
  1. EZETIMIBE [Suspect]
     Active Substance: EZETIMIBE
     Indication: Product used for unknown indication
     Dosage: UNK
     Route: 048
  2. AGGRENOX [Suspect]
     Active Substance: ASPIRIN\DIPYRIDAMOLE
     Indication: Product used for unknown indication
     Dosage: 1 EVERY 1 DAY(S), DOSAGE FORM: CAPSULE (IMMIDIATE AND EXTENDED RELEASE)
     Route: 048
  3. ATORVASTATIN CALCIUM [Suspect]
     Active Substance: ATORVASTATIN CALCIUM
     Indication: Product used for unknown indication
     Dosage: 1 EVERY 1 DAY(S)
     Route: 048
  4. ROSUVASTATIN CALCIUM [Suspect]
     Active Substance: ROSUVASTATIN CALCIUM
     Indication: Product used for unknown indication
     Dosage: 1 EVERY 1 DAY(S)
     Route: 048
  5. CLOPIDOGREL BISULFATE [Concomitant]
     Active Substance: CLOPIDOGREL BISULFATE
     Indication: Product used for unknown indication
     Dosage: UNK
     Route: 065

REACTIONS (3)
  - Muscular weakness [Recovered/Resolved]
  - Depression [Recovered/Resolved]
  - Headache [Recovered/Resolved]
